FAERS Safety Report 18289466 (Version 1)
Quarter: 2020Q3

REPORT INFORMATION
  Report Type: Spontaneous
  Country: US (occurrence: US)
  Receive Date: 20200921
  Receipt Date: 20200921
  Transmission Date: 20201103
  Serious: Yes (Hospitalization)
  Sender: FDA-Public Use
  Company Number: None

PATIENT
  Age: 18 Year
  Sex: Male
  Weight: 85 kg

DRUGS (5)
  1. FENTANYL 50MCG [Concomitant]
     Dates: start: 20200918, end: 20200918
  2. MIDAZOLAM 3MG [Concomitant]
     Dates: start: 20200918, end: 20200918
  3. KETAMINE 40MG [Concomitant]
     Dates: start: 20200918, end: 20200918
  4. LIDOCAINE HYDROCHLORIDE AND EPINEPHRINE BITARTRATE [Suspect]
     Active Substance: EPINEPHRINE BITARTRATE\LIDOCAINE HYDROCHLORIDE
     Indication: TOOTH EXTRACTION
     Dosage: THERAPY ONGOING?: Y?
     Route: 023
     Dates: start: 20200918, end: 20200921
  5. PROPOFOL 120MG [Concomitant]
     Dates: start: 20200918, end: 20200918

REACTIONS (1)
  - Seizure [None]

NARRATIVE: CASE EVENT DATE: 20200918
